FAERS Safety Report 10785699 (Version 2)
Quarter: 2015Q1

REPORT INFORMATION
  Report Type: Report from Study
  Country: GR (occurrence: GR)
  Receive Date: 20150211
  Receipt Date: 20150225
  Transmission Date: 20150721
  Serious: Yes (Other)
  Sender: FDA-Public Use
  Company Number: GR-BAYER-2015-016080

PATIENT
  Age: 30 Year
  Sex: Male

DRUGS (1)
  1. BETAFERON [Suspect]
     Active Substance: INTERFERON BETA-1B
     Indication: MULTIPLE SCLEROSIS
     Dosage: 1 ML, QOD
     Route: 058
     Dates: start: 200609

REACTIONS (8)
  - Product deposit [None]
  - Headache [None]
  - Chills [None]
  - Influenza like illness [Recovered/Resolved]
  - Impaired work ability [None]
  - Muscle spasms [None]
  - Pain [None]
  - Liquid product physical issue [None]

NARRATIVE: CASE EVENT DATE: 200609
